FAERS Safety Report 9624424 (Version 2)
Quarter: 2013Q4

REPORT INFORMATION
  Report Type: Report from Study
  Country: PL (occurrence: PL)
  Receive Date: 20131015
  Receipt Date: 20131017
  Transmission Date: 20140711
  Serious: Yes (Hospitalization)
  Sender: FDA-Public Use
  Company Number: PL-GLAXOSMITHKLINE-Z0011252B

PATIENT
  Age: 32 Year
  Sex: Female
  Weight: 52 kg

DRUGS (7)
  1. LAPATINIB [Suspect]
     Indication: BREAST CANCER METASTATIC
     Dosage: 1250MG PER DAY
     Route: 048
     Dates: start: 20101207
  2. CLEXANE [Concomitant]
     Indication: THROMBOSIS PROPHYLAXIS
     Dosage: 40MG PER DAY
     Route: 058
     Dates: start: 20110103, end: 20120108
  3. PARACETAMOL [Concomitant]
     Indication: PYREXIA
     Dosage: 500MG UNKNOWN
     Route: 048
     Dates: start: 20111103, end: 20111108
  4. VINORELBINE [Suspect]
     Indication: BREAST CANCER METASTATIC
     Dosage: 20MGM2 CYCLIC
     Route: 042
     Dates: start: 20101207, end: 20110822
  5. CAPECITABINE [Suspect]
     Indication: BREAST CANCER METASTATIC
     Dosage: 2000MGM2 CYCLIC
     Route: 048
     Dates: start: 20110915
  6. GUTRON [Concomitant]
     Indication: HYPOTENSION
     Dosage: 2.5MG PER DAY
     Route: 048
     Dates: start: 20110418
  7. CIPRONEX [Concomitant]
     Indication: PYREXIA
     Dosage: 500MG TWICE PER DAY
     Route: 048
     Dates: start: 20111108, end: 20111115

REACTIONS (1)
  - Lymphoedema [Not Recovered/Not Resolved]
